FAERS Safety Report 8554087-5 (Version None)
Quarter: 2012Q3

REPORT INFORMATION
  Report Type: 
  Country: None (occurrence: None)
  Receive Date: 20120731
  Receipt Date: 20120711
  Transmission Date: 20120928
  Serious: No
  Sender: FDA-Public Use
  Company Number: US-ASTRAZENECA-2012SE47892

PATIENT
  Sex: Female

DRUGS (2)
  1. ACIPHEX [Suspect]
     Route: 065
  2. PRILOSEC [Suspect]
     Route: 048

REACTIONS (3)
  - DRUG INEFFECTIVE [None]
  - SINUS DISORDER [None]
  - DYSPEPSIA [None]
